FAERS Safety Report 10218748 (Version 1)
Quarter: 2014Q2

REPORT INFORMATION
  Report Type: Spontaneous
  Country: RU (occurrence: None)
  Receive Date: 20140603
  Receipt Date: 20140603
  Transmission Date: 20141212
  Serious: Yes (Other)
  Sender: FDA-Public Use
  Company Number: 2014000116

PATIENT
  Age: 86 Year
  Sex: Male

DRUGS (2)
  1. ACEON  (PERINDOPRIL ERBUMINE) TABLET [Suspect]
     Indication: HYPERTENSION
     Route: 048
     Dates: start: 201402, end: 20140324
  2. CAPOTEN (CAPTOPRIL) [Concomitant]

REACTIONS (3)
  - Blood pressure increased [None]
  - Drug ineffective [None]
  - Product quality issue [None]
